FAERS Safety Report 8643314 (Version 2)
Quarter: 2012Q4

REPORT INFORMATION
  Report Type: 
  Country: ES (occurrence: ES)
  Receive Date: 20120629
  Receipt Date: 20120905
  Transmission Date: 20130627
  Serious: Yes (Hospitalization)
  Sender: FDA-Public Use
  Company Number: PHHY2012ES053795

PATIENT
  Age: 4 Year
  Sex: Male

DRUGS (5)
  1. EVEROLIMUS [Suspect]
  2. CORTICOSTEROIDS [Concomitant]
  3. PLASMAPHERESIS [Concomitant]
  4. ANTITHYMOCYTE IMMUNOGLOBULIN [Concomitant]
  5. TACROLIMUS [Concomitant]

REACTIONS (27)
  - Respiratory failure [Recovered/Resolved with Sequelae]
  - Renal failure [Recovered/Resolved with Sequelae]
  - Myopathy [Recovered/Resolved with Sequelae]
  - Hypoalbuminaemia [Recovered/Resolved with Sequelae]
  - Clostridium difficile infection [Recovered/Resolved with Sequelae]
  - Ascites [Unknown]
  - Oedema [Unknown]
  - Diarrhoea [Recovered/Resolved with Sequelae]
  - Megacolon [Unknown]
  - Dehydration [Unknown]
  - Inflammation [Unknown]
  - Ileus paralytic [Recovered/Resolved with Sequelae]
  - Mucous stools [Recovered/Resolved with Sequelae]
  - Electrolyte imbalance [Recovered/Resolved with Sequelae]
  - Abdominal distension [Recovered/Resolved with Sequelae]
  - Faecal volume decreased [Unknown]
  - Pseudomembranous colitis [Recovered/Resolved with Sequelae]
  - Abdominal compartment syndrome [Recovered/Resolved with Sequelae]
  - Heart transplant rejection [Recovered/Resolved with Sequelae]
  - Syncope [Recovered/Resolved with Sequelae]
  - Respiratory tract infection [Recovered/Resolved with Sequelae]
  - Septic shock [Recovered/Resolved with Sequelae]
  - Leukopenia [Recovered/Resolved with Sequelae]
  - Condition aggravated [Unknown]
  - Continuous haemodiafiltration [None]
  - Megacolon [None]
  - Critical illness myopathy [None]
